FAERS Safety Report 19036073 (Version 2)
Quarter: 2021Q2

REPORT INFORMATION
  Report Type: Spontaneous
  Country: US (occurrence: US)
  Receive Date: 20210321
  Receipt Date: 20210408
  Transmission Date: 20210717
  Serious: No
  Sender: FDA-Public Use
  Company Number: US-ASTRAZENECA-2021A161263

PATIENT
  Sex: Male

DRUGS (1)
  1. BYDUREON [Suspect]
     Active Substance: EXENATIDE
     Indication: DIABETES MELLITUS
     Route: 058
     Dates: start: 2020

REACTIONS (10)
  - Eructation [Unknown]
  - Weight decreased [Unknown]
  - Incorrect dose administered by device [Unknown]
  - Glycosylated haemoglobin increased [Unknown]
  - Flatulence [Unknown]
  - Needle issue [Unknown]
  - Complication associated with device [Unknown]
  - Injection site pain [Unknown]
  - Drug dose omission by device [Unknown]
  - Device delivery system issue [Unknown]
